FAERS Safety Report 26014666 (Version 1)
Quarter: 2025Q4

REPORT INFORMATION
  Report Type: Spontaneous
  Country: US (occurrence: US)
  Receive Date: 20251108
  Receipt Date: 20251108
  Transmission Date: 20260118
  Serious: Yes (Hospitalization)
  Sender: IPSEN BIOPHARMACEUTICALS, INC.
  Company Number: US-IPSEN Group, Research and Development-2025-27465

PATIENT
  Sex: Female

DRUGS (1)
  1. BYLVAY [Suspect]
     Active Substance: ODEVIXIBAT
     Indication: Product used for unknown indication
     Dosage: SPRINKLE/MIX CONTENTS OF TWO 200 MCG?ORAL PELLETS WITH/OVER FOOD ONCE DAILV WITH A MEAL.
     Route: 048

REACTIONS (1)
  - Weight gain poor [Unknown]
